FAERS Safety Report 12847937 (Version 1)
Quarter: 2016Q4

REPORT INFORMATION
  Report Type: Report from Study
  Country: US (occurrence: US)
  Receive Date: 20161014
  Receipt Date: 20161014
  Transmission Date: 20170207
  Serious: Yes (Other)
  Sender: FDA-Public Use
  Company Number: US-BIOGEN-2016BI00303445

PATIENT
  Sex: Female

DRUGS (1)
  1. TECFIDERA [Suspect]
     Active Substance: DIMETHYL FUMARATE
     Indication: MULTIPLE SCLEROSIS
     Route: 065
     Dates: start: 20140926

REACTIONS (5)
  - Myopia [Unknown]
  - Vision blurred [Unknown]
  - Drug ineffective [Unknown]
  - Optic nerve disorder [Unknown]
  - Blindness transient [Not Recovered/Not Resolved]
